FAERS Safety Report 23633507 (Version 1)
Quarter: 2024Q1

REPORT INFORMATION
  Report Type: Spontaneous
  Country: DK (occurrence: DK)
  Receive Date: 20240314
  Receipt Date: 20240314
  Transmission Date: 20240410
  Serious: Yes (Other)
  Sender: FDA-Public Use
  Company Number: DK-TEVA-VS-3137893

PATIENT
  Age: 74 Year
  Sex: Female

DRUGS (5)
  1. KETOCONAZOLE [Suspect]
     Active Substance: KETOCONAZOLE
     Indication: Rash
     Route: 065
     Dates: start: 20231205
  2. GABAPENTIN [Concomitant]
     Active Substance: GABAPENTIN
  3. POTASSIUM [Concomitant]
     Active Substance: POTASSIUM
  4. LEVOTHYROXINE [Concomitant]
     Active Substance: LEVOTHYROXINE\LEVOTHYROXINE SODIUM
  5. ROSUVASTATIN [Concomitant]
     Active Substance: ROSUVASTATIN

REACTIONS (12)
  - Cerebral haemorrhage [Unknown]
  - Loss of control of legs [Unknown]
  - Skin burning sensation [Unknown]
  - Myalgia [Unknown]
  - Discomfort [Unknown]
  - Gait inability [Unknown]
  - Fatigue [Unknown]
  - Pain [Unknown]
  - Accidental exposure to product [Unknown]
  - Muscle tightness [Unknown]
  - Paraesthesia [Unknown]
  - Muscle spasms [Recovering/Resolving]

NARRATIVE: CASE EVENT DATE: 20231201
